FAERS Safety Report 9714762 (Version 1)
Quarter: 2013Q4

REPORT INFORMATION
  Report Type: Spontaneous
  Country: GB (occurrence: GB)
  Receive Date: 20131126
  Receipt Date: 20131126
  Transmission Date: 20140711
  Serious: Yes (Other)
  Sender: FDA-Public Use
  Company Number: GB-ABBVIE-13P-167-1173351-00

PATIENT
  Sex: Male

DRUGS (5)
  1. EPILIM CHRONO [Suspect]
     Indication: CONVULSION
     Dosage: EXTENDED RELEASE
     Route: 048
  2. EPILIM CHRONO [Suspect]
     Dosage: EXTENDED RELEASE
     Route: 048
     Dates: start: 2013
  3. FOLIC ACID [Concomitant]
     Indication: PRODUCT USED FOR UNKNOWN INDICATION
  4. OMEPRAZOLE [Concomitant]
     Indication: PRODUCT USED FOR UNKNOWN INDICATION
  5. THIAMINE [Concomitant]
     Indication: PRODUCT USED FOR UNKNOWN INDICATION

REACTIONS (2)
  - Ill-defined disorder [Unknown]
  - Convulsion [Unknown]
